FAERS Safety Report 6198164-5 (Version None)
Quarter: 2009Q2

REPORT INFORMATION
  Report Type: 
  Country: None (occurrence: None)
  Receive Date: 20090521
  Receipt Date: 20090512
  Transmission Date: 20091009
  Serious: Yes (Other)
  Sender: FDA-Public Use
  Company Number: GB-ROCHE-633197

PATIENT
  Sex: Female
  Weight: 82.5 kg

DRUGS (6)
  1. ORLISTAT [Suspect]
     Indication: OBESITY
     Route: 048
     Dates: start: 20080819
  2. COD LIVER OIL [Concomitant]
     Indication: UNEVALUABLE EVENT
     Route: 048
  3. GLUCOSAMINE [Concomitant]
     Indication: DRUG USE FOR UNKNOWN INDICATION
     Dosage: REPORTED AS GLUCOSIMINE 1 CAP FULL DAILY
     Route: 048
  4. INDERAL [Concomitant]
     Indication: TACHYCARDIA
     Route: 048
  5. NEXIUM [Concomitant]
     Indication: UNEVALUABLE EVENT
     Dosage: REPORTED AS LEXIUM
     Route: 048
  6. SIMVASTATIN [Concomitant]
     Route: 048

REACTIONS (3)
  - CARDIAC VALVE DISEASE [None]
  - DYSPNOEA [None]
  - TACHYCARDIA [None]
